FAERS Safety Report 4589801-7 (Version None)
Quarter: 2005Q1

REPORT INFORMATION
  Report Type: 
  Country: None (occurrence: None)
  Receive Date: 20050223
  Receipt Date: 20050210
  Transmission Date: 20050727
  Serious: Yes (Hospitalization)
  Sender: FDA-Public Use
  Company Number: FR-GLAXOSMITHKLINE-B0371026A

PATIENT
  Age: 52 Year
  Sex: Female
  Weight: 130 kg

DRUGS (11)
  1. TRIZIVIR [Suspect]
     Indication: HIV INFECTION
     Dosage: 1TAB TWICE PER DAY
     Route: 048
     Dates: start: 20020207
  2. ALDACTONE [Suspect]
     Dosage: 50MG TWICE PER DAY
     Route: 048
     Dates: end: 20040622
  3. LEVOTHYROX [Suspect]
     Route: 048
  4. LUTENYL [Suspect]
     Route: 048
  5. ESTRADERM [Suspect]
  6. HYZAAR [Suspect]
     Route: 048
     Dates: end: 20040616
  7. LIPANOR [Concomitant]
     Route: 048
  8. DIFRAREL [Concomitant]
     Route: 048
  9. CORGARD [Concomitant]
     Route: 048
  10. ZELITREX [Concomitant]
     Route: 048
  11. LOW MOLECULAR WEIGHT HEPARIN [Concomitant]
     Indication: THROMBOSIS PROPHYLAXIS
     Route: 048
     Dates: end: 20040612

REACTIONS (2)
  - DEEP VEIN THROMBOSIS [None]
  - PULMONARY EMBOLISM [None]
